FAERS Safety Report 5145635-6 (Version None)
Quarter: 2006Q4

REPORT INFORMATION
  Report Type: 
  Country: None (occurrence: None)
  Receive Date: 20061101
  Receipt Date: 20061020
  Transmission Date: 20070319
  Serious: Yes (Death)
  Sender: FDA-Public Use
  Company Number: 2006P1000413

PATIENT
  Age: 76 Year
  Sex: Female
  Weight: 80 kg

DRUGS (11)
  1. RETEPLASE (RETEPLASE) [Suspect]
     Indication: ACUTE MYOCARDIAL INFARCTION
     Dosage: IV
     Route: 042
     Dates: start: 20060808
  2. ABCIXIMAB (ABCIXIMAB) [Suspect]
     Indication: ACUTE MYOCARDIAL INFARCTION
     Dosage: IV
     Route: 042
     Dates: start: 20060808
  3. FUROSEMIDE [Concomitant]
  4. DOPAMINE HCL IN 5% DEXTROSE [Concomitant]
  5. AMIODARONE HCL [Concomitant]
  6. HYDROCHLORIDE [Concomitant]
  7. RAMIPRIL [Concomitant]
  8. GLYCERYL TRINITRATE [Concomitant]
  9. ACETYLSALICYLIC ACID SRT [Concomitant]
  10. METOCLOPRAMIDE [Concomitant]
  11. HEPARIN [Concomitant]

REACTIONS (14)
  - ANURIA [None]
  - ATRIAL FIBRILLATION [None]
  - ATRIAL FLUTTER [None]
  - BLOOD CREATININE INCREASED [None]
  - BLOOD POTASSIUM INCREASED [None]
  - BLOOD PRESSURE IMMEASURABLE [None]
  - CARDIAC FAILURE CONGESTIVE [None]
  - CARDIOGENIC SHOCK [None]
  - GINGIVAL BLEEDING [None]
  - PULMONARY OEDEMA [None]
  - PUNCTURE SITE HAEMORRHAGE [None]
  - THROMBOCYTOPENIA [None]
  - TONGUE HAEMORRHAGE [None]
  - VENTRICULAR FIBRILLATION [None]
